FAERS Safety Report 21413850 (Version 3)
Quarter: 2022Q4

REPORT INFORMATION
  Report Type: Spontaneous
  Country: US (occurrence: US)
  Receive Date: 20221006
  Receipt Date: 20221031
  Transmission Date: 20230113
  Serious: Yes (Other)
  Sender: FDA-Public Use
  Company Number: US-AIMMUNE THERAPEUTICS, INC.-2022AIMT02578

PATIENT

DRUGS (3)
  1. PALFORZIA [Suspect]
     Active Substance: PEANUT
     Indication: Food allergy
     Dosage: IDE (0.5-6MG), ONCE
     Route: 048
     Dates: start: 20220711, end: 20220711
  2. PALFORZIA [Suspect]
     Active Substance: PEANUT
     Dosage: 20 MG, 1X/DAY
     Route: 048
     Dates: start: 20220907, end: 20220928
  3. PALFORZIA [Suspect]
     Active Substance: PEANUT
     Dosage: 20 MG, ONCE, LAST DOSE PRIOR EVENT
     Route: 048
     Dates: start: 20220928, end: 20220928

REACTIONS (7)
  - Anaphylactic reaction [Recovered/Resolved]
  - Lip swelling [Recovered/Resolved]
  - Dysphagia [Recovered/Resolved]
  - Throat clearing [Recovered/Resolved]
  - Urticaria [Recovered/Resolved]
  - Illness [Recovered/Resolved]
  - Oropharyngeal pain [Recovered/Resolved]

NARRATIVE: CASE EVENT DATE: 20220901
